FAERS Safety Report 12946611 (Version 2)
Quarter: 2016Q4

REPORT INFORMATION
  Report Type: Report from Study
  Country: JP (occurrence: JP)
  Receive Date: 20161116
  Receipt Date: 20161220
  Transmission Date: 20170207
  Serious: Yes (Death)
  Sender: FDA-Public Use
  Company Number: JP-UCBSA-2016043158

PATIENT
  Age: 55 Year
  Sex: Female
  Weight: 48 kg

DRUGS (4)
  1. E KEPPRA [Suspect]
     Active Substance: LEVETIRACETAM
     Dosage: UNK
     Route: 048
     Dates: start: 20161004, end: 20161011
  2. LEVETIRACETAM. [Suspect]
     Active Substance: LEVETIRACETAM
     Indication: PARTIAL SEIZURES WITH SECONDARY GENERALISATION
     Dosage: 500 MG, ONCE DAILY (QD)
     Route: 041
     Dates: start: 20161003, end: 20161003
  3. LEVETIRACETAM. [Suspect]
     Active Substance: LEVETIRACETAM
     Dosage: 1500 MG, DAILY
     Route: 041
     Dates: start: 20161012, end: 20161012
  4. E KEPPRA [Suspect]
     Active Substance: LEVETIRACETAM
     Indication: PARTIAL SEIZURES WITH SECONDARY GENERALISATION
     Dosage: 400 MG, 2X/DAY (BID)
     Route: 048
     Dates: start: 20160918, end: 20161003

REACTIONS (2)
  - Off label use [Unknown]
  - Brain abscess [Fatal]

NARRATIVE: CASE EVENT DATE: 20161003
